FAERS Safety Report 16234239 (Version 1)
Quarter: 2019Q2

REPORT INFORMATION
  Report Type: Report from Study
  Country: CN (occurrence: CN)
  Receive Date: 20190424
  Receipt Date: 20190424
  Transmission Date: 20190711
  Serious: Yes (Death)
  Sender: FDA-Public Use
  Company Number: CN-ASTRAZENECA-2019SE62548

PATIENT
  Sex: Male
  Weight: 60 kg

DRUGS (1)
  1. SYMBICORT [Suspect]
     Active Substance: BUDESONIDE\FORMOTEROL FUMARATE DIHYDRATE
     Indication: CHRONIC OBSTRUCTIVE PULMONARY DISEASE
     Dosage: 320/9 MCG ABOUT TWO INHALATIONS COULD BE USED FOR 30 DAYS UNKNOWN
     Route: 055
     Dates: start: 2018, end: 20190118

REACTIONS (2)
  - Haematochezia [Fatal]
  - Gastrointestinal carcinoma [Fatal]
